FAERS Safety Report 24753301 (Version 1)
Quarter: 2024Q4

REPORT INFORMATION
  Report Type: Spontaneous
  Country: CN (occurrence: CN)
  Receive Date: 20241219
  Receipt Date: 20241219
  Transmission Date: 20250115
  Serious: Yes (Life-Threatening, Hospitalization)
  Sender: BAYER HEALTHCARE PHARMACEUTICALS INC.
  Company Number: CN-BAYER-2024A176074

PATIENT
  Age: 84 Year
  Sex: Male
  Weight: 74 kg

DRUGS (4)
  1. GLUCOBAY [Interacting]
     Active Substance: ACARBOSE
     Indication: Type 2 diabetes mellitus
     Dosage: 0.1 G, TID, DURING THREE MEALS
     Route: 048
     Dates: start: 20141101, end: 20241119
  2. GLUCOBAY [Interacting]
     Active Substance: ACARBOSE
     Indication: Type 2 diabetes mellitus
     Dosage: 0.1 G, QD, DURING BREAKFAST
     Route: 048
     Dates: start: 20241120, end: 20241122
  3. GLIMEPIRIDE [Interacting]
     Active Substance: GLIMEPIRIDE
     Indication: Type 2 diabetes mellitus
     Dosage: 4 MG, QD, BEFORE BREAKFAST
     Route: 048
     Dates: start: 20141101, end: 20241114
  4. GLIMEPIRIDE [Interacting]
     Active Substance: GLIMEPIRIDE
     Indication: Type 2 diabetes mellitus
     Dosage: 4 MG, QD, BEFORE BREAKFAST
     Route: 048
     Dates: start: 20241115, end: 20241122

REACTIONS (2)
  - Hypoglycaemia [Recovering/Resolving]
  - Peripheral nerve palsy [Recovering/Resolving]

NARRATIVE: CASE EVENT DATE: 20241115
